FAERS Safety Report 17285720 (Version 3)
Quarter: 2020Q1

REPORT INFORMATION
  Report Type: Report from Study
  Country: None (occurrence: CZ)
  Receive Date: 20200118
  Receipt Date: 20200204
  Transmission Date: 20200409
  Serious: Yes (Hospitalization)
  Sender: FDA-Public Use
  Company Number: CZ-ABBVIE-20K-217-3233424-00

PATIENT
  Sex: Female

DRUGS (1)
  1. DUODOPA [Suspect]
     Active Substance: CARBIDOPA\LEVODOPA
     Indication: PARKINSON^S DISEASE
     Dosage: MORNING DOSE 14.1, CONTINUOUS DOSE 4, EXTRA DOSE 3.7
     Route: 050

REACTIONS (3)
  - Injury [Unknown]
  - Dyskinesia [Unknown]
  - Medication error [Unknown]
